FAERS Safety Report 18343508 (Version 4)
Quarter: 2021Q2

REPORT INFORMATION
  Report Type: Report from Study
  Country: CA (occurrence: CA)
  Receive Date: 20201005
  Receipt Date: 20210421
  Transmission Date: 20210717
  Serious: Yes (Other)
  Sender: FDA-Public Use
  Company Number: CA-PFIZER INC-2020381183

PATIENT
  Age: 15 Year
  Sex: Male

DRUGS (10)
  1. VINORELBINE TARTRATE. [Suspect]
     Active Substance: VINORELBINE TARTRATE
     Indication: HODGKIN^S DISEASE
  2. GEMCITABINE HYDROCHLORIDE. [Suspect]
     Active Substance: GEMCITABINE HYDROCHLORIDE
     Indication: SALVAGE THERAPY
     Dosage: 800 MG/M2 DAILY (DAYS 1 AND 4)
     Route: 042
  3. FILGRASTIM [Concomitant]
     Active Substance: FILGRASTIM
     Indication: SUPPORTIVE CARE
     Dosage: 5 UG/KG
  4. METHYLPREDNISOLONE SODIUM SUCCINATE. [Suspect]
     Active Substance: METHYLPREDNISOLONE SODIUM SUCCINATE
     Indication: SALVAGE THERAPY
     Dosage: 100 MG, 1 EVERY 1 DAYS
  5. METHYLPREDNISOLONE SODIUM SUCCINATE. [Suspect]
     Active Substance: METHYLPREDNISOLONE SODIUM SUCCINATE
     Indication: HODGKIN^S DISEASE
  6. VINORELBINE TARTRATE. [Suspect]
     Active Substance: VINORELBINE TARTRATE
     Indication: SALVAGE THERAPY
     Dosage: 25 MG/M2/DOSE (DAYS 1 AND 5)
  7. MESNA. [Concomitant]
     Active Substance: MESNA
     Indication: SUPPORTIVE CARE
     Dosage: 2000 MG/M2, 1X/DAY
  8. IFOSFAMIDE. [Suspect]
     Active Substance: IFOSFAMIDE
     Indication: HODGKIN^S DISEASE
  9. IFOSFAMIDE. [Suspect]
     Active Substance: IFOSFAMIDE
     Indication: SALVAGE THERAPY
     Dosage: 2000 MG/M2 DAILY; ON DAYS 1?4
  10. GEMCITABINE HYDROCHLORIDE. [Suspect]
     Active Substance: GEMCITABINE HYDROCHLORIDE
     Indication: HODGKIN^S DISEASE

REACTIONS (1)
  - Neutropenia [Recovered/Resolved]
